FAERS Safety Report 11072136 (Version 5)
Quarter: 2015Q3

REPORT INFORMATION
  Report Type: Report from Study
  Country: FR (occurrence: FR)
  Receive Date: 20150428
  Receipt Date: 20150702
  Transmission Date: 20151125
  Serious: Yes (Death, Hospitalization)
  Sender: FDA-Public Use
  Company Number: FR-EISAI MEDICAL RESEARCH-EC-2015-006328

PATIENT
  Age: 57 Year
  Sex: Male
  Weight: 76.5 kg

DRUGS (20)
  1. DORZOLAMIDE [Concomitant]
     Active Substance: DORZOLAMIDE
  2. OXYCODONE [Concomitant]
     Active Substance: OXYCODONE
  3. LENVATINIB [Suspect]
     Active Substance: LENVATINIB
     Indication: HEPATOCELLULAR CARCINOMA
     Route: 048
     Dates: start: 20141107, end: 20150225
  4. PARACETAMOL [Concomitant]
     Active Substance: ACETAMINOPHEN
  5. ELUDRIL [Concomitant]
     Active Substance: CHLORHEXIDINE GLUCONATE\CHLOROBUTANOL
  6. FORTIMEL [Concomitant]
     Active Substance: DIETARY SUPPLEMENT
  7. GLYCEROL\PARAFFIN [Concomitant]
     Active Substance: GLYCERIN\PARAFFIN
  8. PROPANOLOL [Concomitant]
     Active Substance: PROPRANOLOL HYDROCHLORIDE
  9. CLOBETASOL [Concomitant]
     Active Substance: CLOBETASOL
  10. PREDNISOLONE. [Concomitant]
     Active Substance: PREDNISOLONE
  11. BICARBONATE [Concomitant]
     Active Substance: BICARBONATE ION
  12. UREA. [Concomitant]
     Active Substance: UREA
  13. SPIRONOLACTONE. [Concomitant]
     Active Substance: SPIRONOLACTONE
  14. LENVATINIB [Suspect]
     Active Substance: LENVATINIB
     Route: 048
     Dates: start: 20150313, end: 20150413
  15. OXAZEPAM. [Concomitant]
     Active Substance: OXAZEPAM
  16. TRAMADOL. [Concomitant]
     Active Substance: TRAMADOL
  17. MACROGOL [Concomitant]
     Active Substance: POLYETHYLENE GLYCOLS
  18. VENLAFAXINE [Concomitant]
     Active Substance: VENLAFAXINE HYDROCHLORIDE
  19. TIMOLOL. [Concomitant]
     Active Substance: TIMOLOL
  20. LATANOPROST. [Concomitant]
     Active Substance: LATANOPROST

REACTIONS (2)
  - Hepatic encephalopathy [Fatal]
  - Oesophageal varices haemorrhage [Recovering/Resolving]

NARRATIVE: CASE EVENT DATE: 20150407
